FAERS Safety Report 4713289-6 (Version None)
Quarter: 2005Q3

REPORT INFORMATION
  Report Type: 
  Country: None (occurrence: None)
  Receive Date: 20050713
  Receipt Date: 20050531
  Transmission Date: 20060218
  Serious: Yes (Death, Life-Threatening, Hospitalization)
  Sender: FDA-Public Use
  Company Number: 2005SE03197

PATIENT
  Age: 30982 Day
  Sex: Male
  Weight: 78 kg

DRUGS (14)
  1. ROSUVASTATIN [Suspect]
     Indication: CARDIAC FAILURE CONGESTIVE
     Route: 048
     Dates: start: 20021114, end: 20050526
  2. N-3 PUFA CODE NOT BROKEN [Suspect]
     Indication: CARDIAC FAILURE CONGESTIVE
     Dates: start: 20021112, end: 20050526
  3. LASIX [Concomitant]
     Indication: CARDIAC FAILURE
     Route: 048
     Dates: end: 20050526
  4. SPIRONOLACTONE [Concomitant]
     Indication: CARDIAC FAILURE
     Route: 048
     Dates: end: 20050526
  5. RAMIPRIL [Concomitant]
     Indication: CARDIAC FAILURE
     Route: 048
     Dates: end: 20050526
  6. ASPIRIN [Concomitant]
     Indication: CARDIAC FAILURE
     Route: 048
     Dates: end: 20050526
  7. ALLOPURINOL [Concomitant]
     Indication: CARDIAC FAILURE
     Route: 048
     Dates: end: 20050526
  8. CORDARONE [Concomitant]
     Indication: CARDIAC FAILURE
     Route: 048
     Dates: end: 20050526
  9. NITRATES [Concomitant]
     Indication: CARDIAC FAILURE
     Route: 062
     Dates: end: 20050526
  10. ZOLOFT [Concomitant]
     Route: 048
     Dates: end: 20050526
  11. KANRENOL [Concomitant]
  12. MINITRAN [Concomitant]
  13. TICLID [Concomitant]
     Dosage: 1+1 TABLET
  14. PARIET [Concomitant]

REACTIONS (8)
  - DISSEMINATED INTRAVASCULAR COAGULATION [None]
  - GALLBLADDER ENLARGEMENT [None]
  - HEPATIC CYST [None]
  - HEPATIC FAILURE [None]
  - HEPATITIS A ANTIBODY POSITIVE [None]
  - HYPOTENSION [None]
  - RENAL CYST [None]
  - RENAL FAILURE [None]
